FAERS Safety Report 8326287-0 (Version None)
Quarter: 2012Q1

REPORT INFORMATION
  Report Type: 
  Country: None (occurrence: None)
  Receive Date: 20120315
  Receipt Date: 20110223
  Transmission Date: 20120608
  Serious: No
  Sender: FDA-Public Use
  Company Number: PHHY2011US15748

PATIENT
  Age: 41 Year
  Sex: Female
  Weight: 85.7 kg

DRUGS (1)
  1. GILENYA [Suspect]
     Dosage: 0.5 MG, QD, ORAL
     Route: 048
     Dates: start: 20110223

REACTIONS (5)
  - FEELING ABNORMAL [None]
  - SLEEP DISORDER [None]
  - FLATULENCE [None]
  - FATIGUE [None]
  - TREMOR [None]
